FAERS Safety Report 5526830-0 (Version None)
Quarter: 2007Q4

REPORT INFORMATION
  Report Type: 
  Country: None (occurrence: None)
  Receive Date: 20071127
  Receipt Date: 20071116
  Transmission Date: 20080405
  Serious: Yes (Life-Threatening, Hospitalization)
  Sender: FDA-Public Use
  Company Number: DE-PFIZER INC-2005040629

PATIENT
  Sex: Male

DRUGS (13)
  1. ZYVOXID TABLET [Suspect]
     Indication: INTERVERTEBRAL DISCITIS
     Route: 048
     Dates: start: 20040901, end: 20040927
  2. ACETYLSALICYLIC ACID SRT [Concomitant]
     Dosage: FREQ:UNKNOWN
     Route: 065
  3. SOTALOL HCL [Concomitant]
     Dosage: FREQ:UNKNOWN
     Route: 065
  4. SORTIS [Concomitant]
     Dosage: FREQ:UNKNOWN
     Route: 048
  5. GLYBURIDE [Concomitant]
     Dosage: FREQ:UNKNOWN
     Route: 065
  6. PRETERAX [Concomitant]
     Dosage: FREQ:UNKNOWN
     Route: 065
  7. MAGNESIUM VERLA TABLET [Concomitant]
     Dosage: FREQ:UNKNOWN
     Route: 065
  8. DETRUSITOL [Concomitant]
     Dosage: FREQ:UNKNOWN
     Route: 065
  9. ACETAMINOPHEN [Concomitant]
     Dosage: FREQ:UNKNOWN
     Route: 065
  10. KALINOR-BRAUSETABLETTEN [Concomitant]
     Dosage: FREQ:UNKNOWN
     Route: 065
  11. FENISTIL-RETARD [Concomitant]
     Dosage: FREQ:UNKNOWN
     Route: 065
  12. PANTOPRAZOLE SODIUM [Concomitant]
     Dosage: FREQ:UNKNOWN
     Route: 065
  13. CLEXANE [Concomitant]
     Dosage: FREQ:UNKNOWN
     Route: 058

REACTIONS (3)
  - HEMIPARESIS [None]
  - HYPOGLYCAEMIA [None]
  - SPEECH DISORDER [None]
